FAERS Safety Report 11215111 (Version 1)
Quarter: 2015Q2

REPORT INFORMATION
  Report Type: Spontaneous
  Country: GB (occurrence: GB)
  Receive Date: 20150624
  Receipt Date: 20150624
  Transmission Date: 20150821
  Serious: Yes (Other)
  Sender: FDA-Public Use
  Company Number: GB-SA-2015SA089168

PATIENT
  Age: 34 Year
  Sex: Female
  Weight: 60 kg

DRUGS (1)
  1. CLOMIFENE CITRATE [Suspect]
     Active Substance: CLOMIPHENE
     Indication: INFERTILITY FEMALE
     Dosage: DAYS 3-6 OF CYCLE
     Route: 048
     Dates: start: 201503

REACTIONS (1)
  - Pityriasis rosea [Not Recovered/Not Resolved]

NARRATIVE: CASE EVENT DATE: 201503
